FAERS Safety Report 16951936 (Version 1)
Quarter: 2019Q4

REPORT INFORMATION
  Report Type: Spontaneous
  Country: US (occurrence: US)
  Receive Date: 20190904
  Receipt Date: 20190904
  Transmission Date: 20200122
  Serious: Yes (Hospitalization)
  Sender: FDA-Public Use
  Company Number: None

PATIENT
  Age: 64 Year
  Sex: Female

DRUGS (12)
  1. AMLODIPINE [Concomitant]
     Active Substance: AMLODIPINE BESYLATE
  2. HUMIRA [Suspect]
     Active Substance: ADALIMUMAB
     Indication: RHEUMATOID ARTHRITIS
     Dosage: ?          OTHER FREQUENCY:EVERY 2 WEEKS;?
     Route: 058
     Dates: start: 20170816
  3. QUINAPRIL. [Concomitant]
     Active Substance: QUINAPRIL
  4. FOLIC ACID. [Concomitant]
     Active Substance: FOLIC ACID
  5. VIT D [Concomitant]
     Active Substance: VITAMIN D NOS
  6. CELEBREX [Concomitant]
     Active Substance: CELECOXIB
  7. PREGABALIN. [Concomitant]
     Active Substance: PREGABALIN
  8. PREDNISONE. [Concomitant]
     Active Substance: PREDNISONE
  9. CYCLOBENZAPR [Concomitant]
     Active Substance: CYCLOBENZAPRINE
  10. LYRICA [Concomitant]
     Active Substance: PREGABALIN
  11. APAP/CODEINE [Suspect]
     Active Substance: ACETAMINOPHEN\CODEINE PHOSPHATE
  12. METHOTREXATE. [Concomitant]
     Active Substance: METHOTREXATE

REACTIONS (2)
  - Therapy cessation [None]
  - Foot operation [None]

NARRATIVE: CASE EVENT DATE: 201906
